FAERS Safety Report 4273770-3 (Version None)
Quarter: 2004Q1

REPORT INFORMATION
  Report Type: 
  Country: None (occurrence: None)
  Receive Date: 20040114
  Receipt Date: 20031230
  Transmission Date: 20041129
  Serious: Yes (Other)
  Sender: FDA-Public Use
  Company Number: 200319579GDDC

PATIENT
  Age: 10 Year
  Sex: Male
  Weight: 32.9 kg

DRUGS (7)
  1. CROMOGLICATE SODIUM (INITIAL NEBULIZER SOLUTION) [Suspect]
     Indication: ASTHMA
     Dosage: 20 MG BID INH
     Route: 055
     Dates: start: 20030623, end: 20030911
  2. CROMOGLICATE SODIUM (INITIAL NEBULIZER SOLUTION) [Suspect]
     Indication: ASTHMA
     Dosage: QD
  3. FLUTICASONE PROPIONATE [Concomitant]
  4. MONTELUKAST [Concomitant]
  5. THOPHYLLINE [Concomitant]
  6. SALBUTAMOL [Concomitant]
  7. CETIRIZINE HCL [Concomitant]

REACTIONS (4)
  - ABNORMAL BEHAVIOUR [None]
  - AGGRESSION [None]
  - AGITATION [None]
  - ANGER [None]
